FAERS Safety Report 14235878 (Version 2)
Quarter: 2017Q4

REPORT INFORMATION
  Report Type: Spontaneous
  Country: US (occurrence: US)
  Receive Date: 20171129
  Receipt Date: 20171206
  Transmission Date: 20180321
  Serious: Yes (Hospitalization, Other)
  Sender: FDA-Public Use
  Company Number: US-PFIZER INC-2017507413

PATIENT
  Age: 45 Year
  Sex: Female

DRUGS (6)
  1. GABAPENTIN. [Suspect]
     Active Substance: GABAPENTIN
     Indication: SYSTEMIC LUPUS ERYTHEMATOSUS
     Dosage: UNK
  2. GABAPENTIN. [Suspect]
     Active Substance: GABAPENTIN
     Indication: CUTANEOUS LUPUS ERYTHEMATOSUS
  3. DULOXETINE. [Suspect]
     Active Substance: DULOXETINE
     Indication: SYSTEMIC LUPUS ERYTHEMATOSUS
     Dosage: UNK
  4. NAPROXEN. [Suspect]
     Active Substance: NAPROXEN
     Indication: SYSTEMIC LUPUS ERYTHEMATOSUS
     Dosage: UNK
  5. NAPROXEN. [Suspect]
     Active Substance: NAPROXEN
     Indication: CUTANEOUS LUPUS ERYTHEMATOSUS
  6. DULOXETINE. [Suspect]
     Active Substance: DULOXETINE
     Indication: CUTANEOUS LUPUS ERYTHEMATOSUS

REACTIONS (1)
  - Toxic epidermal necrolysis [Recovered/Resolved]
